FAERS Safety Report 5707948-6 (Version None)
Quarter: 2008Q2

REPORT INFORMATION
  Report Type: 
  Country: None (occurrence: None)
  Receive Date: 20080417
  Receipt Date: 20080409
  Transmission Date: 20081010
  Serious: Yes (Other)
  Sender: FDA-Public Use
  Company Number: US-BAYER-200818763NA

PATIENT
  Age: 82 Year
  Sex: Male

DRUGS (3)
  1. NEXAVAR [Suspect]
     Indication: HEPATIC NEOPLASM MALIGNANT
     Dosage: TOTAL DAILY DOSE: 800 MG  UNIT DOSE: 200 MG
     Route: 048
     Dates: start: 20080331
  2. DIURETICS [Concomitant]
     Indication: PULMONARY OEDEMA
  3. APPETITE STIMULANT [Concomitant]

REACTIONS (8)
  - ABDOMINAL PAIN UPPER [None]
  - ASTHENIA [None]
  - CONSTIPATION [None]
  - FAECALOMA [None]
  - FATIGUE [None]
  - JAUNDICE [None]
  - MUSCLE SPASMS [None]
  - POLLAKIURIA [None]
